FAERS Safety Report 24184897 (Version 1)
Quarter: 2024Q3

REPORT INFORMATION
  Report Type: Report from Study
  Country: FR (occurrence: FR)
  Receive Date: 20240807
  Receipt Date: 20240807
  Transmission Date: 20241017
  Serious: Yes (Death, Other)
  Sender: ROCHE
  Company Number: FR-ROCHE-10000048084

PATIENT

DRUGS (1)
  1. MYCOPHENOLATE MOFETIL [Suspect]
     Active Substance: MYCOPHENOLATE MOFETIL
     Indication: Ocular sarcoidosis
     Dosage: DOSE RANGED BETWEEN 2 AND 3 G/DAY
     Route: 065

REACTIONS (6)
  - Ophthalmic herpes zoster [Unknown]
  - Prostate cancer [Unknown]
  - Abdominal pain [Unknown]
  - Gastric cancer [Unknown]
  - Herpes virus infection [Unknown]
  - Cardiac sarcoidosis [Fatal]
